FAERS Safety Report 9224876 (Version 1)
Quarter: 2013Q1

REPORT INFORMATION
  Report Type: Spontaneous
  Country: US (occurrence: None)
  Receive Date: 20120917
  Receipt Date: 20120917
  Transmission Date: 20140127
  Serious: Yes (Death)
  Sender: FDA-Public Use
  Company Number: 063582

PATIENT
  Age: 56 Year
  Sex: Female

DRUGS (6)
  1. ROTIGOTINE [Suspect]
     Indication: PARKINSON^S DISEASE
     Dosage: PATCH FOR 7 DAYS AND GOING UPTO 4 MG
     Dates: start: 20120725
  2. VENLAFAXINE [Concomitant]
  3. TROSPIUM [Concomitant]
  4. SOLIFENACIN [Concomitant]
  5. CARBIDOPA W/LEVODOPA [Concomitant]
  6. RASAGILINE [Concomitant]

REACTIONS (1)
  - Death [None]
